FAERS Safety Report 9917586 (Version 1)
Quarter: 2014Q1

REPORT INFORMATION
  Report Type: Spontaneous
  Country: NL (occurrence: NL)
  Receive Date: 20140221
  Receipt Date: 20140221
  Transmission Date: 20141002
  Serious: Yes (Other)
  Sender: FDA-Public Use
  Company Number: NL-ABBVIE-14P-114-1203078-00

PATIENT
  Age: 10 Year
  Sex: Female

DRUGS (1)
  1. LUCRIN PDS [Suspect]
     Indication: PRECOCIOUS PUBERTY
     Route: 058

REACTIONS (5)
  - Medication error [Unknown]
  - Incorrect route of drug administration [Unknown]
  - Injection site haemorrhage [Unknown]
  - Adverse event [Unknown]
  - Unevaluable event [Unknown]
